FAERS Safety Report 5588257-5 (Version None)
Quarter: 2008Q1

REPORT INFORMATION
  Report Type: 
  Country: None (occurrence: None)
  Receive Date: 20080108
  Receipt Date: 20071223
  Transmission Date: 20080703
  Serious: Yes (Hospitalization)
  Sender: FDA-Public Use
  Company Number: ACO_00416_2007

PATIENT
  Sex: Male

DRUGS (3)
  1. SIRDALUD (SIRDALUD - TIZANIDINE HYDROCHLORIDE) 12 MG (NOT SPECIFIED) [Suspect]
     Indication: DRUG USE FOR UNKNOWN INDICATION
     Dosage: (829 MG 1X ORAL)
     Route: 048
     Dates: start: 20070421, end: 20070421
  2. LEXOTANIL (LEXOTANIL - BROMAZEPAM) 6 MG [Suspect]
     Indication: DRUG USE FOR UNKNOWN INDICATION
     Dosage: (147 MG 1X  ORAL)
  3. METHADON STREULI (METHADON STREULI METHADONE HYDROCHLORIDE) [Suspect]
     Indication: DRUG ABUSE
     Dosage: (DF)

REACTIONS (7)
  - ATRIOVENTRICULAR BLOCK COMPLETE [None]
  - BLOOD CREATINE PHOSPHOKINASE INCREASED [None]
  - COMA [None]
  - DRUG LEVEL INCREASED [None]
  - HYPOTENSION [None]
  - INCORRECT DOSE ADMINISTERED [None]
  - SUICIDE ATTEMPT [None]
